FAERS Safety Report 8792712 (Version 2)
Quarter: 2015Q1

REPORT INFORMATION
  Report Type: Report from Study
  Country: US (occurrence: US)
  Receive Date: 20120918
  Receipt Date: 20150326
  Transmission Date: 20150721
  Serious: Yes (Death)
  Sender: FDA-Public Use
  Company Number: US-ROCHE-1127053

PATIENT
  Age: 69 Year
  Sex: Female

DRUGS (4)
  1. LEUCOVORIN [Concomitant]
     Active Substance: LEUCOVORIN
  2. ELOXATIN [Concomitant]
     Active Substance: OXALIPLATIN
  3. 5-FLUOROURACIL [Concomitant]
     Active Substance: FLUOROURACIL
  4. AVASTIN [Suspect]
     Active Substance: BEVACIZUMAB
     Indication: SMALL INTESTINE CARCINOMA
     Route: 065
     Dates: start: 20050524

REACTIONS (2)
  - Death [Fatal]
  - Off label use [Unknown]

NARRATIVE: CASE EVENT DATE: 20060307
